FAERS Safety Report 19062744 (Version 4)
Quarter: 2022Q2

REPORT INFORMATION
  Report Type: Spontaneous
  Country: BR (occurrence: BR)
  Receive Date: 20210326
  Receipt Date: 20220613
  Transmission Date: 20220721
  Serious: Yes (Hospitalization, Other)
  Sender: FDA-Public Use
  Company Number: NVSC2021BR065065

PATIENT
  Age: 2 Year
  Sex: Male
  Weight: 13.2 kg

DRUGS (1)
  1. ZOLGENSMA [Suspect]
     Active Substance: ONASEMNOGENE ABEPARVOVEC-XIOI
     Indication: Spinal muscular atrophy
     Dosage: 74.3 ML, ONCE/SINGLE
     Route: 042
     Dates: start: 20210305

REACTIONS (3)
  - Thrombocytopenia [Recovered/Resolved]
  - Thrombocytopenia [Unknown]
  - Transaminases increased [Recovering/Resolving]

NARRATIVE: CASE EVENT DATE: 20210101
